FAERS Safety Report 8975019 (Version 4)
Quarter: 2013Q1

REPORT INFORMATION
  Report Type: Report from Study
  Country: JP (occurrence: JP)
  Receive Date: 20121219
  Receipt Date: 20130325
  Transmission Date: 20140127
  Serious: Yes (Death, Life-Threatening)
  Sender: FDA-Public Use
  Company Number: JP-GILEAD-2012-0066540

PATIENT
  Age: 76 None
  Sex: Female

DRUGS (13)
  1. AMBRISENTAN [Suspect]
     Indication: PULMONARY ARTERIAL HYPERTENSION
     Dosage: 5 MG, QD
     Route: 048
     Dates: start: 20110202, end: 20110904
  2. AMBRISENTAN [Suspect]
     Dosage: 2.5 MG, QD
     Route: 048
     Dates: start: 20110119, end: 20110201
  3. CARELOAD [Concomitant]
     Indication: PULMONARY ARTERIAL HYPERTENSION
     Route: 048
     Dates: start: 20110804, end: 20110904
  4. PROGRAF [Concomitant]
     Route: 048
     Dates: end: 20110904
  5. OLMETEC [Concomitant]
     Route: 048
     Dates: end: 20110201
  6. BAKTAR [Concomitant]
     Indication: PROPHYLAXIS
     Route: 048
     Dates: end: 20110904
  7. DIHYDROCODEINE PHOSPHATE [Concomitant]
     Route: 048
     Dates: end: 20110904
  8. MAGMITT [Concomitant]
     Route: 048
     Dates: end: 20110904
  9. HUSTAZOL                           /00398402/ [Concomitant]
     Route: 048
     Dates: start: 20110406, end: 20110904
  10. RINDERON                           /00008501/ [Concomitant]
     Route: 048
     Dates: start: 20110406, end: 20110904
  11. TRANSAMIN [Concomitant]
     Route: 048
     Dates: start: 20110512, end: 20110904
  12. MYSLEE [Concomitant]
     Route: 048
     Dates: start: 20110512, end: 20110904
  13. TALION                             /01587402/ [Concomitant]
     Route: 048
     Dates: start: 20110707, end: 20110904

REACTIONS (5)
  - Pneumonia bacterial [Fatal]
  - Interstitial lung disease [Fatal]
  - Lung neoplasm malignant [Fatal]
  - Dyspnoea [Not Recovered/Not Resolved]
  - Liver disorder [Not Recovered/Not Resolved]
